FAERS Safety Report 24381798 (Version 2)
Quarter: 2024Q4

REPORT INFORMATION
  Report Type: Spontaneous
  Country: US (occurrence: US)
  Receive Date: 20241001
  Receipt Date: 20241025
  Transmission Date: 20250115
  Serious: Yes (Hospitalization, Other)
  Sender: BRISTOL-MYERS SQUIBB COMPANY
  Company Number: US-BRISTOL-MYERS SQUIBB COMPANY-2024-153365

PATIENT
  Age: 82 Year
  Sex: Female
  Weight: 83.91 kg

DRUGS (16)
  1. REVLIMID [Suspect]
     Active Substance: LENALIDOMIDE
     Indication: Plasma cell myeloma
     Dosage: 1 CAPSULE DAILY FOR 14 DAYS, THEN OFF FOR 7 DAYS
     Route: 048
     Dates: start: 20240508
  2. REVLIMID [Suspect]
     Active Substance: LENALIDOMIDE
     Route: 048
     Dates: start: 20240906
  3. REVLIMID [Suspect]
     Active Substance: LENALIDOMIDE
     Route: 048
     Dates: start: 20241017
  4. ONDANSETRON HYDROCHLORIDE [Concomitant]
     Active Substance: ONDANSETRON HYDROCHLORIDE
     Indication: Product used for unknown indication
  5. VELCADE [Concomitant]
     Active Substance: BORTEZOMIB
     Indication: Product used for unknown indication
     Dosage: 3.5 VIAL
  6. ZOLEDRONIC ACID [Concomitant]
     Active Substance: ZOLEDRONIC ACID
     Indication: Product used for unknown indication
     Dosage: 5MG/100ML
  7. ACYCLOVIR [Concomitant]
     Active Substance: ACYCLOVIR
     Indication: Product used for unknown indication
  8. VITAMIN B12 [Concomitant]
     Active Substance: CYANOCOBALAMIN
     Indication: Product used for unknown indication
  9. CALCIUM\CHOLECALCIFEROL [Concomitant]
     Active Substance: CALCIUM\CHOLECALCIFEROL
     Indication: Product used for unknown indication
     Dosage: 600-800 SM
  10. LENALIDOMIDE [Concomitant]
     Active Substance: LENALIDOMIDE
     Indication: Product used for unknown indication
     Dates: start: 20240521
  11. LENALIDOMIDE [Concomitant]
     Active Substance: LENALIDOMIDE
     Dates: start: 20240607
  12. LENALIDOMIDE [Concomitant]
     Active Substance: LENALIDOMIDE
     Dates: start: 20240627
  13. LENALIDOMIDE [Concomitant]
     Active Substance: LENALIDOMIDE
     Dates: start: 20240716
  14. LENALIDOMIDE [Concomitant]
     Active Substance: LENALIDOMIDE
     Dates: start: 20240812
  15. LENALIDOMIDE [Concomitant]
     Active Substance: LENALIDOMIDE
     Dates: start: 20240906
  16. LENALIDOMIDE [Concomitant]
     Active Substance: LENALIDOMIDE
     Dates: start: 20240430

REACTIONS (2)
  - Illness [Unknown]
  - Renal impairment [Recovering/Resolving]
